FAERS Safety Report 24963395 (Version 1)
Quarter: 2025Q1

REPORT INFORMATION
  Report Type: Spontaneous
  Country: US (occurrence: US)
  Receive Date: 20250213
  Receipt Date: 20250213
  Transmission Date: 20250408
  Serious: Yes (Death)
  Sender: MERCK SHARP & DOHME LLC
  Company Number: US-009507513-2253676

PATIENT
  Sex: Male

DRUGS (1)
  1. KEYTRUDA [Suspect]
     Active Substance: PEMBROLIZUMAB
     Dosage: INFUSE 200MG VIA IVPB OVER 30MIN EVERY 21DAYS; STRENGTH: 100 MG

REACTIONS (1)
  - Death [Fatal]
